FAERS Safety Report 6083472-9 (Version None)
Quarter: 2009Q1

REPORT INFORMATION
  Report Type: 
  Country: None (occurrence: None)
  Receive Date: 20090219
  Receipt Date: 20090210
  Transmission Date: 20090719
  Serious: Yes (Death, Hospitalization)
  Sender: FDA-Public Use
  Company Number: US-KINGPHARMUSA00001-K200900065

PATIENT

DRUGS (1)
  1. ALTACE [Suspect]
     Indication: CARDIAC VALVE DISEASE
     Dosage: UNK
     Route: 048

REACTIONS (7)
  - ABDOMINAL DISTENSION [None]
  - CHEST DISCOMFORT [None]
  - DEATH [None]
  - DYSPNOEA [None]
  - HYPOTENSION [None]
  - OEDEMA PERIPHERAL [None]
  - VENTRICULAR TACHYCARDIA [None]
